FAERS Safety Report 14444370 (Version 2)
Quarter: 2018Q1

REPORT INFORMATION
  Report Type: Spontaneous
  Country: JP (occurrence: JP)
  Receive Date: 20180125
  Receipt Date: 20180219
  Transmission Date: 20180509
  Serious: Yes (Hospitalization)
  Sender: FDA-Public Use
  Company Number: PHJP2018JP001557

PATIENT
  Age: 82 Year
  Sex: Male

DRUGS (2)
  1. EXELON PATCH [Suspect]
     Active Substance: RIVASTIGMINE
     Dosage: PATCH5(CM2), QD
     Route: 062
     Dates: start: 20171111, end: 20171129
  2. EXELON PATCH [Suspect]
     Active Substance: RIVASTIGMINE
     Indication: DEMENTIA ALZHEIMER^S TYPE
     Dosage: PATCH2.5(CM2), QD
     Route: 062
     Dates: start: 20171014

REACTIONS (3)
  - Gallbladder hypofunction [Recovering/Resolving]
  - Pyrexia [Recovering/Resolving]
  - Nausea [Recovering/Resolving]

NARRATIVE: CASE EVENT DATE: 20171115
